FAERS Safety Report 5719379-3 (Version None)
Quarter: 2008Q2

REPORT INFORMATION
  Report Type: 
  Country: None (occurrence: None)
  Receive Date: 20080428
  Receipt Date: 20080422
  Transmission Date: 20081010
  Serious: Yes (Hospitalization, Disabling)
  Sender: FDA-Public Use
  Company Number: US-KINGPHARMUSA00001-K200800456

PATIENT

DRUGS (8)
  1. ALTACE [Suspect]
     Route: 048
     Dates: start: 20050101, end: 20080227
  2. KETOPROFEN [Suspect]
     Dosage: 150 MG, PRN
     Route: 048
  3. KARDEGIC                           /00002703/ [Suspect]
     Dates: start: 20050101, end: 20080301
  4. ATENOLOL [Suspect]
     Dates: start: 20050101
  5. AMLOR [Concomitant]
     Dosage: 5 MG, UNK
     Route: 048
  6. ATORVASTATIN CALCIUM [Concomitant]
     Dosage: 80 MG, UNK
     Route: 048
  7. EZETROL [Concomitant]
  8. QUESTRAN [Concomitant]

REACTIONS (4)
  - DISABILITY [None]
  - LARYNGEAL OEDEMA [None]
  - OEDEMA PERIPHERAL [None]
  - URTICARIA [None]
